FAERS Safety Report 10080544 (Version 3)
Quarter: 2014Q2

REPORT INFORMATION
  Report Type: Spontaneous
  Country: IT (occurrence: IT)
  Receive Date: 20140416
  Receipt Date: 20140530
  Transmission Date: 20141212
  Serious: Yes (Other)
  Sender: FDA-Public Use
  Company Number: IT-ROCHE-1383603

PATIENT
  Age: 62 Year
  Sex: Female

DRUGS (2)
  1. BEVACIZUMAB [Suspect]
     Indication: MACULAR OEDEMA
     Route: 031
     Dates: start: 20120413, end: 20120413
  2. BEVACIZUMAB [Suspect]
     Route: 050
     Dates: start: 20120203

REACTIONS (2)
  - Uveitis [Recovered/Resolved]
  - Off label use [Unknown]
